FAERS Safety Report 24941858 (Version 1)
Quarter: 2025Q1

REPORT INFORMATION
  Report Type: Spontaneous
  Country: US (occurrence: US)
  Receive Date: 20250207
  Receipt Date: 20250207
  Transmission Date: 20250409
  Serious: Yes (Hospitalization)
  Sender: QUAGEN PHARMACEUTICALS
  Company Number: US-QUAGEN-2025QUALIT00201

PATIENT

DRUGS (9)
  1. VALPROIC ACID [Suspect]
     Active Substance: VALPROIC ACID
     Indication: Alcohol use disorder
     Route: 065
  2. VALPROIC ACID [Suspect]
     Active Substance: VALPROIC ACID
     Indication: Alcohol use disorder
     Route: 065
  3. VALPROIC ACID [Suspect]
     Active Substance: VALPROIC ACID
     Indication: Alcohol use disorder
  4. OLANZAPINE [Suspect]
     Active Substance: OLANZAPINE
     Indication: Alcohol use disorder
     Route: 065
  5. OLANZAPINE [Suspect]
     Active Substance: OLANZAPINE
     Indication: Alcohol use disorder
     Route: 065
  6. OLANZAPINE [Suspect]
     Active Substance: OLANZAPINE
     Indication: Alcohol use disorder
  7. LORAZEPAM [Concomitant]
     Active Substance: LORAZEPAM
     Indication: Alcohol use disorder
     Route: 065
  8. HALOPERIDOL [Concomitant]
     Active Substance: HALOPERIDOL
     Indication: Alcohol use disorder
     Route: 065
  9. THIAMINE [Concomitant]
     Active Substance: THIAMINE
     Indication: Alcohol use disorder
     Route: 042

REACTIONS (2)
  - Periorbital oedema [Recovered/Resolved]
  - Product use in unapproved indication [Unknown]
